FAERS Safety Report 4450339-9 (Version None)
Quarter: 2004Q3

REPORT INFORMATION
  Report Type: 
  Country: None (occurrence: None)
  Receive Date: 20040914
  Receipt Date: 20040831
  Transmission Date: 20050211
  Serious: Yes (Death)
  Sender: FDA-Public Use
  Company Number: B01200401623

PATIENT
  Age: 63 Year
  Sex: Male

DRUGS (8)
  1. (OXALIPLATIN) - SOLUTION - 195 MG [Suspect]
     Indication: COLORECTAL CANCER
     Dosage: 85 MG/M2 Q2W (CUMULATIVE DOSE : 1170 MG), INTRAVENOUS NOS: TIME TO ONSET : 1 WEEK 2 DAYS
     Route: 042
     Dates: start: 20040628, end: 20040628
  2. (OXALIPLATIN) - SOLUTION - 195 MG [Suspect]
     Indication: HEPATIC NEOPLASM MALIGNANT RESECTABLE
     Dosage: 85 MG/M2 Q2W (CUMULATIVE DOSE : 1170 MG), INTRAVENOUS NOS: TIME TO ONSET : 1 WEEK 2 DAYS
     Route: 042
     Dates: start: 20040628, end: 20040628
  3. (OXALIPLATIN) - SOLUTION - 195 MG [Suspect]
     Indication: METASTASES TO LIVER
     Dosage: 85 MG/M2 Q2W (CUMULATIVE DOSE : 1170 MG), INTRAVENOUS NOS: TIME TO ONSET : 1 WEEK 2 DAYS
     Route: 042
     Dates: start: 20040628, end: 20040628
  4. FLUOROURACIL [Suspect]
     Dosage: 400 MG/M2 BOLUS THEN 600 MG/M2 22HOUR CONTINUOUS INFUSION ON D1 AND D2 Q2W (CUMULATIVE DOSE:27480MG)
     Route: 042
     Dates: start: 20040628, end: 20040629
  5. (LEUCOVORIN) - SOLUTION - 458 MG [Suspect]
     Dosage: 200 MG/M2 Q2W (CUMULATIVE DOSE : 5496 MG), INTRAVENOUS NOS-TIME TO ONSET: 1 WEEK 2 DAYS
     Route: 042
     Dates: start: 20040628, end: 20040629
  6. ATENOLOL [Concomitant]
  7. BENDROFLUAZIDE [Concomitant]
  8. CHLOPIXOL (ZUCLOPENTHIXOL) [Concomitant]

REACTIONS (6)
  - BLOOD ALBUMIN DECREASED [None]
  - BLOOD MAGNESIUM DECREASED [None]
  - DYSPNOEA EXERTIONAL [None]
  - FATIGUE [None]
  - NEUTROPENIA [None]
  - SUDDEN DEATH [None]
